FAERS Safety Report 6229793-8 (Version None)
Quarter: 2009Q2

REPORT INFORMATION
  Report Type: 
  Country: None (occurrence: None)
  Receive Date: 20090615
  Receipt Date: 20090603
  Transmission Date: 20091009
  Serious: Yes (Other)
  Sender: FDA-Public Use
  Company Number: GB-PFIZER INC-2009202917

PATIENT
  Age: 43 Year

DRUGS (2)
  1. CHAMPIX [Suspect]
     Dosage: 1 MG, 2X/DAY
     Route: 048
     Dates: start: 20080815, end: 20081024
  2. ALCOHOL [Suspect]
     Dosage: UNK
     Route: 048

REACTIONS (6)
  - ABNORMAL BEHAVIOUR [None]
  - AGGRESSION [None]
  - AMNESIA [None]
  - CONDUCT DISORDER [None]
  - PHYSICAL ASSAULT [None]
  - SUICIDE ATTEMPT [None]
